FAERS Safety Report 9639209 (Version 1)
Quarter: 2013Q4

REPORT INFORMATION
  Report Type: Spontaneous
  Country: US (occurrence: None)
  Receive Date: 20131009
  Receipt Date: 20131009
  Transmission Date: 20140711
  Serious: Yes (Other)
  Sender: FDA-Public Use
  Company Number: QR74179-01

PATIENT
  Sex: Female

DRUGS (1)
  1. GAMMAPLEX [Suspect]
     Route: 042

REACTIONS (4)
  - Pain [None]
  - Dyspnoea [None]
  - Headache [None]
  - Vision blurred [None]
